FAERS Safety Report 20249094 (Version 7)
Quarter: 2025Q2

REPORT INFORMATION
  Report Type: Spontaneous
  Country: PL (occurrence: PL)
  Receive Date: 20211229
  Receipt Date: 20250602
  Transmission Date: 20250717
  Serious: Yes (Other)
  Sender: MYLAN
  Company Number: PL-002147023-NVSC2021PL271842

PATIENT
  Age: 88 Year
  Sex: Male

DRUGS (106)
  1. ATORVASTATIN [Suspect]
     Active Substance: ATORVASTATIN
     Indication: Product used for unknown indication
     Dosage: 40 MILLIGRAM, QD (40 MG, QD)
     Dates: start: 201810
  2. ATORVASTATIN [Suspect]
     Active Substance: ATORVASTATIN
     Dosage: 40 MILLIGRAM, QD (40 MG, QD)
     Dates: start: 201810
  3. ATORVASTATIN [Suspect]
     Active Substance: ATORVASTATIN
     Dosage: 40 MILLIGRAM, QD (40 MG, QD)
     Dates: start: 201910
  4. ATORVASTATIN [Suspect]
     Active Substance: ATORVASTATIN
     Dosage: 40 MILLIGRAM, QD, 40 MG, QD
     Dates: start: 20211112
  5. ATORVASTATIN [Suspect]
     Active Substance: ATORVASTATIN
     Dosage: 40 MILLIGRAM, QD (40 MILLIGRAM DAILY)
  6. ROSUVASTATIN [Suspect]
     Active Substance: ROSUVASTATIN
     Indication: Product used for unknown indication
  7. ROSUVASTATIN [Suspect]
     Active Substance: ROSUVASTATIN
     Dosage: 10 MILLIGRAM, QD (10 MG, QD) START DATE: SEP-2021
     Dates: start: 201910
  8. ROSUVASTATIN [Suspect]
     Active Substance: ROSUVASTATIN
     Dosage: 20 MILLIGRAM, QD (20 MG, QD) START DATE: 12-NOV-2021
     Dates: start: 20211112
  9. ROSUVASTATIN [Suspect]
     Active Substance: ROSUVASTATIN
     Dosage: 10 MILLIGRAM, QD
     Dates: start: 201910
  10. ROSUVASTATIN [Suspect]
     Active Substance: ROSUVASTATIN
     Dosage: 10 MILLIGRAM, QD
     Dates: start: 202109
  11. ROSUVASTATIN [Suspect]
     Active Substance: ROSUVASTATIN
     Dosage: 20 MILLIGRAM, QD
     Dates: start: 20211112
  12. ROSUVASTATIN [Suspect]
     Active Substance: ROSUVASTATIN
     Dosage: (20 MILLIGRAM, EVERY 8 HRS)
     Dates: start: 20191112
  13. METOPROLOL [Suspect]
     Active Substance: METOPROLOL
     Indication: Product used for unknown indication
     Dosage: 75 MILLIGRAM, QD (25 MG, TID, IN THE MORNING, AT NOON AND IN THE EVENING)
     Dates: start: 201810
  14. METOPROLOL [Suspect]
     Active Substance: METOPROLOL
  15. METOPROLOL [Suspect]
     Active Substance: METOPROLOL
     Dosage: 75 MILLIGRAM, TID (75 MILLIGRAM, QD (25 MG, TID, IN THE MORNING, AT NOON AND IN THE EVENING))
     Dates: start: 201910
  16. METOPROLOL [Suspect]
     Active Substance: METOPROLOL
     Dosage: 200 MILLIGRAM, QD (100 MG, BID)
     Dates: start: 201911
  17. METOPROLOL [Suspect]
     Active Substance: METOPROLOL
     Dosage: 5 MILLIGRAM, QD (5 MG, QD)
     Dates: start: 20211112
  18. METOPROLOL [Suspect]
     Active Substance: METOPROLOL
     Dosage: 400 MILLIGRAM, QD, (100 MG, BID)
     Dates: start: 201911
  19. METOPROLOL [Suspect]
     Active Substance: METOPROLOL
     Dosage: 225 MILLIGRAM, QD, (25 MG, TID, IN THE MORNING, AT NOON AND IN THE EVENING)
     Dates: start: 201810
  20. METOPROLOL [Suspect]
     Active Substance: METOPROLOL
     Dosage: 225 MILLIGRAM, QD, (25 MG, TID, IN THE MORNING, AT NOON AND IN THE EVENING)
     Dates: start: 201910
  21. METOPROLOL [Suspect]
     Active Substance: METOPROLOL
     Dosage: 200 MILLIGRAM DAILY
  22. METOPROLOL [Suspect]
     Active Substance: METOPROLOL
  23. METOPROLOL [Suspect]
     Active Substance: METOPROLOL
  24. METOPROLOL [Suspect]
     Active Substance: METOPROLOL
     Dosage: 75 MILLIGRAM, QD (75 MILLIGRAM DAILY; 25 MG,1 IN 8 HR)
  25. METOPROLOL [Suspect]
     Active Substance: METOPROLOL
     Dosage: 100 MILLIGRAM, BID (100 MILLIGRAM, Q12H)
  26. METOPROLOL [Suspect]
     Active Substance: METOPROLOL
     Dosage: 25 MILLIGRAM, Q8H
  27. METOPROLOL [Suspect]
     Active Substance: METOPROLOL
     Dosage: 25 MILLIGRAM, TID
  28. METOPROLOL [Suspect]
     Active Substance: METOPROLOL
     Dosage: 100 MILLIGRAM, BID
     Dates: start: 201911
  29. ASPIRIN [Suspect]
     Active Substance: ASPIRIN
     Indication: Product used for unknown indication
     Dosage: 5 MILLIGRAM, QD (2.5 MG, BID)
     Dates: start: 201810
  30. ASPIRIN [Suspect]
     Active Substance: ASPIRIN
     Dosage: 10 MILLIGRAM, QD (10 MILLIGRAM DAILY)
  31. ASPIRIN [Suspect]
     Active Substance: ASPIRIN
     Dosage: 2.5 MILLIGRAM, BID (2.5 MILLIGRAM, Q12H)
  32. ASPIRIN [Suspect]
     Active Substance: ASPIRIN
     Dosage: 2.5 MILLIGRAM, BID (2.5 MILLIGRAM,BID)
     Dates: start: 201810
  33. EPLERENONE [Suspect]
     Active Substance: EPLERENONE
     Indication: Product used for unknown indication
     Dosage: 25 MILLIGRAM, QD, (25 MILLIGRAM, 1/DAY)
     Dates: start: 201810
  34. EPLERENONE [Suspect]
     Active Substance: EPLERENONE
     Dosage: 50 MILLIGRAM, QD (50 MG, QD)
     Dates: start: 201910
  35. EPLERENONE [Suspect]
     Active Substance: EPLERENONE
     Dosage: 25 MILLIGRAM, QD, (25 MILLIGRAM, 1/DAY)
     Dates: start: 202109
  36. EPLERENONE [Suspect]
     Active Substance: EPLERENONE
     Dosage: 25 MILLIGRAM, QD (25 MILLIGRAM, 1/DAY)
     Dates: start: 20211112
  37. TORSEMIDE [Suspect]
     Active Substance: TORSEMIDE
     Indication: Product used for unknown indication
     Dosage: 10 MILLIGRAM, QD (10 MG, QD, IN THE MORNING)
     Dates: start: 201810
  38. TORSEMIDE [Suspect]
     Active Substance: TORSEMIDE
     Dosage: 15 MILLIGRAM, QD (15 MG, 1/DAY))
     Dates: start: 201810
  39. TORSEMIDE [Suspect]
     Active Substance: TORSEMIDE
     Dosage: 10 MILLIGRAM, QD (10 MG, 1/DAY0
     Dates: start: 201910
  40. TORSEMIDE [Suspect]
     Active Substance: TORSEMIDE
     Dosage: 15 MILLIGRAM, QD (15 MG, 1/DAY))
     Dates: start: 201910
  41. TORSEMIDE [Suspect]
     Active Substance: TORSEMIDE
     Dosage: 20 MILLIGRAM, QD (10 MG, BID)
     Dates: start: 202109
  42. TORSEMIDE [Suspect]
     Active Substance: TORSEMIDE
     Dosage: 20 MILLIGRAM, QD (10 MG, BID)
     Dates: start: 20211112
  43. TORSEMIDE [Suspect]
     Active Substance: TORSEMIDE
     Dosage: 10 MILLIGRAM, QD (10 MILLIGRAM DAILY)
  44. TORSEMIDE [Suspect]
     Active Substance: TORSEMIDE
     Dosage: 20 MILLIGRAM, QD (20 MILLIGRAM DAILY)
  45. TORSEMIDE [Suspect]
     Active Substance: TORSEMIDE
     Dosage: 1 UNK, BID (10 MILLIGRAM, Q12H)
  46. TORSEMIDE [Suspect]
     Active Substance: TORSEMIDE
     Dosage: 40 MILLIGRAM, BID (80 MILLIGRAM DAILY)
     Dates: start: 201910
  47. TORSEMIDE [Suspect]
     Active Substance: TORSEMIDE
     Dosage: 40 MILLIGRAM, QD (40 MILLIGRAM DAILY)
     Dates: start: 20211112
  48. TORSEMIDE [Suspect]
     Active Substance: TORSEMIDE
     Dosage: 10 MILLIGRAM, QD (10 MILLIGRAM, EVERY 12 HRS)
     Dates: start: 20211112
  49. UNSPECIFIED INGREDIENT [Suspect]
     Active Substance: UNSPECIFIED INGREDIENT
     Indication: Product used for unknown indication
  50. OMEPRAZOLE [Suspect]
     Active Substance: OMEPRAZOLE
     Indication: Product used for unknown indication
     Dosage: 20 MILLIGRAM, QD (20 MG, QD)
     Dates: start: 201810
  51. OMEPRAZOLE [Suspect]
     Active Substance: OMEPRAZOLE
     Dosage: 20 MILLIGRAM, QD (20 MG, QD)
     Dates: start: 201910
  52. OMEPRAZOLE [Suspect]
     Active Substance: OMEPRAZOLE
     Dosage: 10 MILLIGRAM, QD (10 MG, QD)
     Dates: start: 202109
  53. OMEPRAZOLE [Suspect]
     Active Substance: OMEPRAZOLE
     Dosage: 20 MILLIGRAM, QD (20 MG, QD)
     Dates: start: 20211112
  54. OMEPRAZOLE [Suspect]
     Active Substance: OMEPRAZOLE
     Dosage: 20 MILLIGRAM, QD (20 MG, QD)
     Dates: start: 202109
  55. OMEPRAZOLE [Suspect]
     Active Substance: OMEPRAZOLE
  56. RAMIPRIL [Suspect]
     Active Substance: RAMIPRIL
     Indication: Product used for unknown indication
     Dosage: 5 MILLIGRAM, BID (5 MILLIGRAM, QD,2.5 MILLIGRAM, BID, IN THE MORNING AND EVENING)
  57. RAMIPRIL [Suspect]
     Active Substance: RAMIPRIL
     Dosage: 5 MILLIGRAM, QD
  58. RAMIPRIL [Suspect]
     Active Substance: RAMIPRIL
     Dosage: 2.5 MILLIGRAM, QD
  59. RAMIPRIL [Suspect]
     Active Substance: RAMIPRIL
     Dosage: 2.5 MILLIGRAM, QD
  60. SACUBITRIL\VALSARTAN [Suspect]
     Active Substance: SACUBITRIL\VALSARTAN
     Indication: Product used for unknown indication
     Dosage: 1 DOSAGE FORMS DAILY; 24/26 MG
     Dates: start: 201810
  61. SACUBITRIL\VALSARTAN [Suspect]
     Active Substance: SACUBITRIL\VALSARTAN
     Dosage: 4 DOSAGE FORM, QD, 2 DOSAGE FORM (49/51 MG ), BID
     Dates: start: 201911
  62. SACUBITRIL\VALSARTAN [Suspect]
     Active Substance: SACUBITRIL\VALSARTAN
     Dosage: 1 DOSAGE FORM, QD (1 DOSAGE FORMS DAILY; 24/26 MG)
     Dates: start: 202109
  63. SACUBITRIL\VALSARTAN [Suspect]
     Active Substance: SACUBITRIL\VALSARTAN
     Dosage: UNK UNK, QD (DOSAGE FORM (24/26 MG) BID)
     Dates: start: 20211112
  64. SACUBITRIL\VALSARTAN [Suspect]
     Active Substance: SACUBITRIL\VALSARTAN
     Dosage: 1 DOSAGE FORM, QD, (1 DOSAGE FORM, 1/DA)
     Dates: start: 20211112
  65. SACUBITRIL\VALSARTAN [Suspect]
     Active Substance: SACUBITRIL\VALSARTAN
     Dosage: 1 DOSAGE FORM, BID (2 DOSAGE FORMS DAILY; 24/26 MG)
     Dates: start: 202111
  66. SACUBITRIL\VALSARTAN [Suspect]
     Active Substance: SACUBITRIL\VALSARTAN
     Dosage: 1 DOSAGE FORM, QD (1 DOSAGE FORMS DAILY; 24/26 MG)
  67. SACUBITRIL\VALSARTAN [Suspect]
     Active Substance: SACUBITRIL\VALSARTAN
     Dosage: 2 DOSAGE FORM, QD (2 UNK, QD (49/51 MG))
  68. SACUBITRIL\VALSARTAN [Suspect]
     Active Substance: SACUBITRIL\VALSARTAN
     Dosage: 2 DOSAGE FORM, BID (22 DOSAGE FORM, EVERY 12 HRS)
     Dates: start: 201911
  69. APIXABAN [Suspect]
     Active Substance: APIXABAN
     Indication: Cerebrovascular accident prophylaxis
     Dosage: 5 MILLIGRAM, BID,2.5 MILLIGRAM, BID
     Dates: start: 201810
  70. APIXABAN [Suspect]
     Active Substance: APIXABAN
     Dosage: 5 MILLIGRAM, BID,2.5 MILLIGRAM, BID
     Dates: start: 201910
  71. APIXABAN [Suspect]
     Active Substance: APIXABAN
     Dosage: 5 MILLIGRAM, BID,2.5 MILLIGRAM, BID
     Dates: start: 20211112
  72. APIXABAN [Suspect]
     Active Substance: APIXABAN
     Dosage: 2.5 MILLIGRAM, BID (2.5 MILLIGRAM, Q12H)
  73. APIXABAN [Suspect]
     Active Substance: APIXABAN
  74. FUROSEMIDE [Suspect]
     Active Substance: FUROSEMIDE
     Indication: Product used for unknown indication
     Dosage: 80 MILLIGRAM, QD (40 MG, BID,  IN THE MORNING)
     Dates: start: 201810
  75. FUROSEMIDE [Suspect]
     Active Substance: FUROSEMIDE
     Dosage: 80 MILLIGRAM, QD (40 MG, BID)
     Dates: start: 201810
  76. FUROSEMIDE [Suspect]
     Active Substance: FUROSEMIDE
     Dosage: 40 MILLIGRAM, QD (40 MG, QD)
     Dates: start: 201910
  77. FUROSEMIDE [Suspect]
     Active Substance: FUROSEMIDE
     Dosage: 80 MILLIGRAM, QD (40 MG, BID)
     Dates: start: 201910
  78. FUROSEMIDE [Suspect]
     Active Substance: FUROSEMIDE
     Dosage: 50 MILLIGRAM, QD (50 MG, QD)
  79. FUROSEMIDE [Suspect]
     Active Substance: FUROSEMIDE
     Dosage: 80 MILLIGRAM, QD (40 MG, BID)
     Dates: start: 202109
  80. FUROSEMIDE [Suspect]
     Active Substance: FUROSEMIDE
     Dosage: 80 MILLIGRAM, QD (40 MG, BID)
     Dates: start: 20211112
  81. FUROSEMIDE [Suspect]
     Active Substance: FUROSEMIDE
     Dosage: 40 MILLIGRAM, BID
     Dates: start: 201810
  82. FUROSEMIDE [Suspect]
     Active Substance: FUROSEMIDE
     Dosage: 160 MILLIGRAM, (40 MG, BID)
     Dates: start: 201810
  83. FUROSEMIDE [Suspect]
     Active Substance: FUROSEMIDE
     Dosage: 160 MILLIGRAM, (40 MG, BID)
     Dates: start: 201910
  84. FUROSEMIDE [Suspect]
     Active Substance: FUROSEMIDE
     Dosage: 40 MILLIGRAM, BID(40 MILLIGRAM DAILY)
  85. FUROSEMIDE [Suspect]
     Active Substance: FUROSEMIDE
     Dosage: 40 MILLIGRAM, AM (40 MILLIGRAM BID IN THE MORNING )
     Dates: start: 20211112
  86. FUROSEMIDE [Suspect]
     Active Substance: FUROSEMIDE
     Dosage: 40 MILLIGRAM, BID(40 MILLIGRAM DAILY)
     Dates: start: 201910
  87. FUROSEMIDE [Suspect]
     Active Substance: FUROSEMIDE
     Dosage: 40 MILLIGRAM, BID(40 MILLIGRAM DAILY)
     Dates: start: 201910
  88. FUROSEMIDE [Suspect]
     Active Substance: FUROSEMIDE
     Dosage: 40 MILLIGRAM, BID(40 MILLIGRAM DAILY)
     Dates: start: 201910
  89. NYSTATIN [Suspect]
     Active Substance: NYSTATIN
     Indication: Product used for unknown indication
  90. ATORVASTATIN CALCIUM [Suspect]
     Active Substance: ATORVASTATIN CALCIUM
     Indication: Product used for unknown indication
  91. ATORVASTATIN CALCIUM [Suspect]
     Active Substance: ATORVASTATIN CALCIUM
     Dosage: 40 MILLIGRAM, QD
     Dates: start: 201910
  92. ATORVASTATIN CALCIUM [Suspect]
     Active Substance: ATORVASTATIN CALCIUM
     Dosage: 40 MILLIGRAM, QD (40 MILLIGRAM, 1/DAY)
     Dates: start: 20211112
  93. ASPIRIN [Suspect]
     Active Substance: ASPIRIN
     Indication: Product used for unknown indication
     Dosage: 2.5 MILLIGRAM, BID
     Dates: start: 201810
  94. ASPIRIN [Suspect]
     Active Substance: ASPIRIN
     Dosage: 10 MILLIGRAM, QD
  95. PANTOPRAZOLE SODIUM [Suspect]
     Active Substance: PANTOPRAZOLE SODIUM
     Indication: Product used for unknown indication
     Dosage: 20 MILLIGRAM, QD (20 MILLIGRAM, 1/DAY)
     Dates: start: 201910
  96. PANTOPRAZOLE SODIUM [Suspect]
     Active Substance: PANTOPRAZOLE SODIUM
     Dosage: 20 MILLIGRAM, QD
     Dates: start: 202110
  97. PANTOPRAZOLE SODIUM [Suspect]
     Active Substance: PANTOPRAZOLE SODIUM
     Dosage: 20 MILLIGRAM, QD (20 MG, QD)
     Dates: start: 20211112
  98. PANTOPRAZOLE SODIUM [Suspect]
     Active Substance: PANTOPRAZOLE SODIUM
     Dosage: 10 MILLIGRAM, QD (10 MILLIGRAM, 1/DAY)
     Dates: start: 202111
  99. PANTOPRAZOLE SODIUM [Suspect]
     Active Substance: PANTOPRAZOLE SODIUM
     Dosage: 10 MILLIGRAM, QD
  100. PANTOPRAZOLE SODIUM [Suspect]
     Active Substance: PANTOPRAZOLE SODIUM
     Dosage: 20 MILLIGRAM, QD (20 MG, QD)
     Dates: start: 202111
  101. PANTOPRAZOLE SODIUM [Suspect]
     Active Substance: PANTOPRAZOLE SODIUM
     Dosage: 20 MILLIGRAM, QD (20 MILLIGRAM, 1/DAY)
     Dates: start: 201810
  102. PANTOPRAZOLE SODIUM [Suspect]
     Active Substance: PANTOPRAZOLE SODIUM
     Dosage: 20 MILLIGRAM, QD (20 MILLIGRAM, 1/DAY)
     Dates: start: 202109
  103. SACUBITRIL [Suspect]
     Active Substance: SACUBITRIL
     Indication: Product used for unknown indication
     Dosage: 1 DOSAGE FORM, BID (1 DF EVERY 12 HOURS, 2 DOSAGE FORMS DAILY; 24/26 MG)
  104. SACUBITRIL [Suspect]
     Active Substance: SACUBITRIL
     Dosage: 1 DOSAGE FORM, BID (1 DF EVERY 12 HOURS, 2 DOSAGE FORMS DAILY; 24/26 MG)
  105. SACUBITRIL [Suspect]
     Active Substance: SACUBITRIL
     Dosage: 1 DOSAGE FORM, QD (1 DOSAGE FORM DAILY; 24/26 MG)
  106. SACUBITRIL [Suspect]
     Active Substance: SACUBITRIL
     Dosage: 4 DOSAGE FORM, QD (4 DOSAGE FORMS DAILY; 49/51M)

REACTIONS (17)
  - Pneumonia [Unknown]
  - Chronic kidney disease [Unknown]
  - Pulmonary congestion [Unknown]
  - Atrial thrombosis [Unknown]
  - Urinary tract infection [Unknown]
  - Myopathy [Unknown]
  - Atrial fibrillation [Unknown]
  - Disease progression [Unknown]
  - Dilated cardiomyopathy [Unknown]
  - Sinus tachycardia [Unknown]
  - Cardiac failure [Unknown]
  - Cardiac failure chronic [Unknown]
  - Ventricular arrhythmia [Unknown]
  - Cardiomyopathy [Unknown]
  - Cardiogenic shock [Unknown]
  - Low cardiac output syndrome [Unknown]
  - Dyskinesia [Unknown]

NARRATIVE: CASE EVENT DATE: 20200501
